FAERS Safety Report 4633203-1 (Version None)
Quarter: 2005Q2

REPORT INFORMATION
  Report Type: 
  Country: None (occurrence: None)
  Receive Date: 20050408
  Receipt Date: 20050328
  Transmission Date: 20051028
  Serious: Yes (Hospitalization, Other)
  Sender: FDA-Public Use
  Company Number: 2004121406

PATIENT
  Age: 37 Year
  Sex: Female

DRUGS (7)
  1. DEPO-PROVERA [Suspect]
     Indication: CONTRACEPTION
     Dosage: SEE IMAGE
     Route: 065
     Dates: start: 20040910, end: 20040910
  2. DEPO-PROVERA [Suspect]
     Indication: CONTRACEPTION
     Dosage: SEE IMAGE
     Route: 065
     Dates: start: 20041208, end: 20041208
  3. DICLOFENAC POTASSIUM [Concomitant]
  4. CEPHALEXIN MONOHYDRATE [Concomitant]
  5. BROMAZEPAM (BROMAZEPAM) [Concomitant]
  6. HYOSCINE HBR HYT [Concomitant]
  7. DICLOFENAC SODIUM [Concomitant]

REACTIONS (7)
  - ABDOMINAL PAIN [None]
  - GALLBLADDER OPERATION [None]
  - HEADACHE [None]
  - MEMORY IMPAIRMENT [None]
  - MENSTRUATION IRREGULAR [None]
  - NAUSEA [None]
  - VAGINAL HAEMORRHAGE [None]
